FAERS Safety Report 15719835 (Version 1)
Quarter: 2018Q4

REPORT INFORMATION
  Report Type: Report from Study
  Country: US (occurrence: US)
  Receive Date: 20181213
  Receipt Date: 20181213
  Transmission Date: 20190205
  Serious: Yes (Hospitalization, Other)
  Sender: FDA-Public Use
  Company Number: US-AMGEN-USACT2018170699

PATIENT
  Age: 52 Year
  Sex: Male
  Weight: 93.3 kg

DRUGS (33)
  1. CYTARABINE. [Suspect]
     Active Substance: CYTARABINE
     Indication: LYMPHOMA
  2. DEXAMETHASONE. [Suspect]
     Active Substance: DEXAMETHASONE
     Indication: ACUTE LYMPHOCYTIC LEUKAEMIA
     Dosage: UNK UNK, PER CHEMO REGIM
     Route: 065
     Dates: start: 20161001
  3. VINCRISTINE [Suspect]
     Active Substance: VINCRISTINE
     Indication: LYMPHOMA
  4. CARFILZOMIB [Suspect]
     Active Substance: CARFILZOMIB
     Indication: LYMPHOMA
  5. METHOTREXATE. [Suspect]
     Active Substance: METHOTREXATE
     Indication: ACUTE LYMPHOCYTIC LEUKAEMIA
     Dosage: 1000 MG/M2 AND 12 MG  PER CHEMO REGIM
     Route: 042
     Dates: start: 20161001, end: 20161003
  6. DOXORUBICIN [Suspect]
     Active Substance: DOXORUBICIN
     Indication: ACUTE LYMPHOCYTIC LEUKAEMIA
     Dosage: UNK UNK, PER CHEMO REGIM
     Route: 065
     Dates: start: 20161001
  7. METHYLPREDNISOLONE. [Suspect]
     Active Substance: METHYLPREDNISOLONE
     Indication: LYMPHOMA
  8. DIFLUCAN [Concomitant]
     Active Substance: FLUCONAZOLE
     Dosage: 200 MG, BID
     Dates: start: 20160922
  9. LORAZEPAM. [Concomitant]
     Active Substance: LORAZEPAM
     Dosage: 0.5 MG, UNK
     Dates: start: 20160921
  10. LOVENOX [Concomitant]
     Active Substance: ENOXAPARIN SODIUM
     Dosage: 80 MG, BID
     Route: 058
     Dates: start: 20160921
  11. ZOFRAN [Concomitant]
     Active Substance: ONDANSETRON HYDROCHLORIDE
     Dosage: 8 MG, BID, PRN
     Route: 048
     Dates: start: 20161008
  12. PERIDEX [Concomitant]
     Active Substance: CHLORHEXIDINE GLUCONATE
     Dosage: 15 ML, BID, PRN
     Route: 048
     Dates: start: 20161014
  13. DEXAMETHASONE. [Suspect]
     Active Substance: DEXAMETHASONE
     Indication: LYMPHOMA
  14. FILGRASTIM [Concomitant]
     Active Substance: FILGRASTIM
     Dosage: 480 MUG (D 6-15), UNK
  15. PROTONIX [Concomitant]
     Active Substance: PANTOPRAZOLE SODIUM
     Dosage: 40 MG, QD
     Dates: start: 20160921
  16. ACYCLOVIR. [Concomitant]
     Active Substance: ACYCLOVIR
     Dosage: 400 MG, BID
     Route: 048
     Dates: start: 20160921
  17. CARFILZOMIB [Suspect]
     Active Substance: CARFILZOMIB
     Indication: ACUTE LYMPHOCYTIC LEUKAEMIA
     Dosage: 27 MG/M2, PER CHEMO REGIM
     Route: 042
     Dates: start: 20160902
  18. CYCLOPHOSPHAMIDE. [Suspect]
     Active Substance: CYCLOPHOSPHAMIDE
     Indication: LYMPHOMA
  19. DOXORUBICIN [Suspect]
     Active Substance: DOXORUBICIN
     Indication: LYMPHOMA
  20. COMPAZINE [Concomitant]
     Active Substance: PROCHLORPERAZINE MALEATE
     Dosage: 10 MG, AS NECESSARY
     Dates: start: 20160922
  21. MS CONTIN [Concomitant]
     Active Substance: MORPHINE SULFATE
     Dosage: 60 MG, BID
     Route: 048
     Dates: start: 20160921
  22. NORCO [Concomitant]
     Active Substance: ACETAMINOPHEN\HYDROCODONE BITARTRATE
     Dosage: 5/325 MG 4-6 HOURS, AS NECESSARY
     Route: 048
     Dates: start: 20160922
  23. RITUXIMAB. [Concomitant]
     Active Substance: RITUXIMAB
     Dosage: 375 MG/M2 (DAYS 1,8) , UNK
     Route: 042
  24. SENOKOT [Concomitant]
     Active Substance: SENNOSIDES
     Dosage: 8.6 MG, QHS, PRN
     Route: 048
     Dates: start: 20161008
  25. FLEXERIL [Concomitant]
     Active Substance: CYCLOBENZAPRINE HYDROCHLORIDE
     Dosage: 10 MG, TID, PRN
     Route: 048
     Dates: start: 20161008
  26. CYCLOPHOSPHAMIDE. [Suspect]
     Active Substance: CYCLOPHOSPHAMIDE
     Indication: ACUTE LYMPHOCYTIC LEUKAEMIA
     Dosage: UNK UNK, PER CHEMO REGIM
     Route: 065
     Dates: start: 20161001
  27. VINCRISTINE [Suspect]
     Active Substance: VINCRISTINE
     Indication: ACUTE LYMPHOCYTIC LEUKAEMIA
     Dosage: UNK UNK, PER CHEMO REGIM
     Route: 065
     Dates: start: 20161001
  28. METHOTREXATE. [Suspect]
     Active Substance: METHOTREXATE
     Indication: LYMPHOMA
  29. FOLINIC ACID [Suspect]
     Active Substance: LEUCOVORIN
     Indication: ACUTE LYMPHOCYTIC LEUKAEMIA
     Dosage: 50 MG, PER CHEMO REGIM
     Route: 042
     Dates: start: 20161001
  30. CYTARABINE. [Suspect]
     Active Substance: CYTARABINE
     Indication: ACUTE LYMPHOCYTIC LEUKAEMIA
     Dosage: 3000 MG/M2 (DAYS 2 AND 3), PER CHEMO REGIM
     Route: 065
     Dates: start: 20161001, end: 20161007
  31. METHYLPREDNISOLONE. [Suspect]
     Active Substance: METHYLPREDNISOLONE
     Indication: ACUTE LYMPHOCYTIC LEUKAEMIA
     Dosage: UNK UNK, PER CHEMO REGIM
     Route: 065
     Dates: start: 20161001
  32. MIRALAX [Concomitant]
     Active Substance: POLYETHYLENE GLYCOL 3350
     Dosage: 17 G, QD, PRN
     Dates: start: 20161008
  33. COLACE [Concomitant]
     Active Substance: DOCUSATE SODIUM
     Dosage: 100 MG, BID, PRN
     Route: 048
     Dates: start: 20161008

REACTIONS (7)
  - Chest discomfort [Unknown]
  - Chest pain [Unknown]
  - Palpitations [Unknown]
  - Dyspnoea [Unknown]
  - Pancytopenia [Unknown]
  - Febrile neutropenia [Recovered/Resolved]
  - Cough [Unknown]

NARRATIVE: CASE EVENT DATE: 2016
